FAERS Safety Report 15607879 (Version 1)
Quarter: 2018Q4

REPORT INFORMATION
  Report Type: Spontaneous
  Country: US (occurrence: US)
  Receive Date: 20181112
  Receipt Date: 20181112
  Transmission Date: 20190205
  Serious: No
  Sender: FDA-Public Use
  Company Number: US-PFIZER INC-2018452008

PATIENT
  Age: 54 Year
  Sex: Female
  Weight: 52.16 kg

DRUGS (3)
  1. PAXIL [PIROXICAM] [Concomitant]
     Indication: ANXIETY
     Dosage: 10 MG, 1X/DAY
     Route: 048
  2. DESIPRAMINE [Concomitant]
     Active Substance: DESIPRAMINE
     Indication: ANXIETY
     Dosage: 25 MG, DAILY (ONE TABLET)
     Route: 048
  3. PREMPRO [Suspect]
     Active Substance: ESTROGENS, CONJUGATED\MEDROXYPROGESTERONE ACETATE
     Indication: MENOPAUSAL SYMPTOMS
     Dosage: 0.3 MG/1.5 MG, 1X/DAY
     Route: 048
     Dates: start: 20180608

REACTIONS (1)
  - Menstrual disorder [Unknown]

NARRATIVE: CASE EVENT DATE: 2018
